FAERS Safety Report 6836676-9 (Version None)
Quarter: 2010Q3

REPORT INFORMATION
  Report Type: 
  Country: None (occurrence: None)
  Receive Date: 20100713
  Receipt Date: 20100630
  Transmission Date: 20110219
  Serious: Yes (Hospitalization, Other)
  Sender: FDA-Public Use
  Company Number: PHHY2010BR43288

PATIENT
  Age: 85 Year
  Sex: Female
  Weight: 54 kg

DRUGS (10)
  1. DIOVAN [Suspect]
     Indication: HYPERTENSION
     Dosage: 1 TABLET (80 MG), IN THE MORNING AND EVENING
     Route: 048
     Dates: start: 20050101
  2. DIOVAN [Suspect]
     Dosage: 1 TABLET (80 MG), DAILY
     Route: 048
     Dates: start: 20060101
  3. DIOVAN [Suspect]
     Dosage: 1 TABLET (80 MG), BID
     Dates: start: 20100101
  4. DIOVAN [Suspect]
     Dosage: 1 TABLET (80 MG), DAILY
  5. BUMEX [Concomitant]
     Indication: FLUID RETENTION
     Dosage: HALF TABLET (1 MG), DAILY
  6. ALDACTONE [Concomitant]
     Indication: CARDIAC DISORDER
     Dosage: 1 TABLET (25 MG), IN THE AFTERNOON
  7. CRESTOR [Concomitant]
     Indication: BLOOD CHOLESTEROL INCREASED
     Dosage: 1 TABLET (10 MG), AFTER DINNER
  8. OMEPRAZOLE [Concomitant]
     Dosage: 1 TABLET (20 MG), DAILY IN FASTING
     Route: 048
  9. ANCORON [Concomitant]
     Indication: CARDIAC DISORDER
     Dosage: 1 TABLET (100 MG) DAILY
     Route: 048
  10. SOMALGIN [Concomitant]
     Indication: CARDIAC DISORDER
     Dosage: 1 TABLET (100 MG) DAILY
     Route: 048

REACTIONS (10)
  - BLOOD PRESSURE DECREASED [None]
  - BLOOD PRESSURE INCREASED [None]
  - CARDIOMEGALY [None]
  - DRUG DOSE OMISSION [None]
  - FEELING ABNORMAL [None]
  - HEADACHE [None]
  - INFLUENZA [None]
  - MALAISE [None]
  - PNEUMONIA [None]
  - PYREXIA [None]
